FAERS Safety Report 22606152 (Version 1)
Quarter: 2023Q2

REPORT INFORMATION
  Report Type: Spontaneous
  Country: US (occurrence: None)
  Receive Date: 20230614
  Receipt Date: 20230614
  Transmission Date: 20230722
  Serious: Yes (unspecified)
  Sender: FDA-Public Use
  Company Number: None

PATIENT
  Age: 43 Year
  Sex: Male
  Weight: 85.4 kg

DRUGS (1)
  1. LUMASON [Suspect]
     Active Substance: SULFUR HEXAFLUORIDE
     Indication: Echocardiogram
     Dosage: FREQUENCY : ONCE;?
     Route: 040
     Dates: start: 20230502, end: 20230502

REACTIONS (14)
  - Hypotension [None]
  - Headache [None]
  - Nausea [None]
  - Sinus tachycardia [None]
  - Dyspnoea [None]
  - Chest pain [None]
  - Pain [None]
  - Paraesthesia [None]
  - Sensation of foreign body [None]
  - Chest discomfort [None]
  - Muscular weakness [None]
  - Tryptase increased [None]
  - Anaphylactic reaction [None]
  - Drug hypersensitivity [None]

NARRATIVE: CASE EVENT DATE: 20230502
